FAERS Safety Report 4821861-8 (Version None)
Quarter: 2005Q4

REPORT INFORMATION
  Report Type: 
  Country: None (occurrence: None)
  Receive Date: 20051103
  Receipt Date: 20051019
  Transmission Date: 20060501
  Serious: Yes (Hospitalization)
  Sender: FDA-Public Use
  Company Number: EWC040840300

PATIENT
  Age: 39 Year
  Sex: Female
  Weight: 70 kg

DRUGS (3)
  1. OLANZAPINE [Suspect]
     Indication: MANIA
     Dosage: 15 MG/2 DAY
     Dates: start: 20040616, end: 20040726
  2. DEPRAKINE (VALPROATE SODIUM) [Concomitant]
  3. OXAZEPAM [Concomitant]

REACTIONS (4)
  - MANIA [None]
  - NEUROLEPTIC MALIGNANT SYNDROME [None]
  - PARKINSONISM [None]
  - WHITE BLOOD CELL COUNT INCREASED [None]
